FAERS Safety Report 14903828 (Version 2)
Quarter: 2018Q2

REPORT INFORMATION
  Report Type: Report from Study
  Country: US (occurrence: US)
  Receive Date: 20180516
  Receipt Date: 20180625
  Transmission Date: 20180711
  Serious: Yes (Hospitalization)
  Sender: FDA-Public Use
  Company Number: US-CELGENEUS-USA-20180502556

PATIENT
  Age: 59 Year
  Sex: Female
  Weight: 59.4 kg

DRUGS (5)
  1. BUSULFAN. [Concomitant]
     Active Substance: BUSULFAN
     Indication: PRODUCT USED FOR UNKNOWN INDICATION
     Route: 065
     Dates: start: 20180220, end: 20180223
  2. ATG [Concomitant]
     Active Substance: LAPINE T-LYMPHOCYTE IMMUNE GLOBULIN
     Indication: PRODUCT USED FOR UNKNOWN INDICATION
     Route: 065
     Dates: start: 20180223, end: 20180225
  3. FLUDARABINE [Concomitant]
     Active Substance: FLUDARABINE PHOSPHATE
     Indication: PRODUCT USED FOR UNKNOWN INDICATION
     Route: 065
     Dates: start: 20180220, end: 20180223
  4. ROMIDEPSIN. [Suspect]
     Active Substance: ROMIDEPSIN
     Indication: PERIPHERAL T-CELL LYMPHOMA UNSPECIFIED
     Dosage: 3.3 MILLIGRAM
     Route: 041
     Dates: start: 20180220, end: 20180223
  5. ROMIDEPSIN. [Suspect]
     Active Substance: ROMIDEPSIN
     Indication: PREMEDICATION

REACTIONS (6)
  - Graft versus host disease in gastrointestinal tract [Unknown]
  - Dyspnoea [Recovered/Resolved]
  - Liver function test increased [Unknown]
  - Asthenia [Unknown]
  - Graft versus host disease in skin [Unknown]
  - Graft versus host disease in skin [Recovering/Resolving]

NARRATIVE: CASE EVENT DATE: 20180504
